FAERS Safety Report 10862369 (Version 1)
Quarter: 2015Q1

REPORT INFORMATION
  Report Type: Spontaneous
  Country: AU (occurrence: AU)
  Receive Date: 20150224
  Receipt Date: 20150224
  Transmission Date: 20150721
  Serious: Yes (Other)
  Sender: FDA-Public Use
  Company Number: AU-JNJFOC-20150107493

PATIENT
  Age: 50 Year
  Sex: Male
  Weight: 51 kg

DRUGS (3)
  1. RIBAVIRIN. [Suspect]
     Active Substance: RIBAVIRIN
     Indication: HEPATITIS C
     Route: 065
     Dates: start: 20141031
  2. OLYSIO [Suspect]
     Active Substance: SIMEPREVIR
     Indication: HEPATITIS C
     Dosage: FOR UP TO WEEK 10
     Route: 048
     Dates: start: 20141031, end: 20150113
  3. PEGASYS [Suspect]
     Active Substance: PEGINTERFERON ALFA-2A
     Indication: HEPATITIS C
     Route: 065
     Dates: start: 20141031

REACTIONS (10)
  - Rash [Not Recovered/Not Resolved]
  - Alanine aminotransferase increased [Unknown]
  - Serum sickness-like reaction [Unknown]
  - Aspartate aminotransferase increased [Unknown]
  - Photosensitivity reaction [Not Recovered/Not Resolved]
  - Skin burning sensation [Unknown]
  - Lymphadenopathy [Unknown]
  - Appetite disorder [Unknown]
  - Sleep disorder [Unknown]
  - Rash [Not Recovered/Not Resolved]

NARRATIVE: CASE EVENT DATE: 201412
